FAERS Safety Report 15763771 (Version 1)
Quarter: 2018Q4

REPORT INFORMATION
  Report Type: Spontaneous
  Country: GB (occurrence: GB)
  Receive Date: 20181227
  Receipt Date: 20181227
  Transmission Date: 20190205
  Serious: Yes (Other)
  Sender: FDA-Public Use
  Company Number: GB-TEVA-2018-GB-991076

PATIENT
  Age: 4 Year
  Sex: Male

DRUGS (1)
  1. NIFEDIPINE. [Suspect]
     Active Substance: NIFEDIPINE
     Dosage: 45 MILLIGRAM DAILY;
     Route: 065

REACTIONS (2)
  - Pallor [Unknown]
  - Bradycardia [Unknown]

NARRATIVE: CASE EVENT DATE: 20181101
